FAERS Safety Report 24825028 (Version 5)
Quarter: 2025Q1

REPORT INFORMATION
  Report Type: Report from Study
  Country: US (occurrence: US)
  Receive Date: 20250109
  Receipt Date: 20250306
  Transmission Date: 20250409
  Serious: Yes (Congenital Anomaly, Other)
  Sender: UCB
  Company Number: US-UCBSA-2024059408

PATIENT
  Age: 7 Year
  Sex: Female

DRUGS (32)
  1. FINTEPLA [Suspect]
     Active Substance: FENFLURAMINE
     Indication: Seizure
     Dosage: 4.5 MILLILITER, 2X/DAY (BID)
     Dates: start: 20240409
  2. FINTEPLA [Suspect]
     Active Substance: FENFLURAMINE
     Dosage: 4.5 MILLILITER, 2X/DAY (BID)
     Dates: start: 2024
  3. FINTEPLA [Suspect]
     Active Substance: FENFLURAMINE
     Dosage: 9.9 MILLIGRAM, 2X/DAY (BID)
     Route: 048
     Dates: start: 20240824
  4. FINTEPLA [Suspect]
     Active Substance: FENFLURAMINE
     Dosage: 4.5 MILLILITER, 2X/DAY (BID)
     Dates: start: 2024
  5. VIMPAT [Suspect]
     Active Substance: LACOSAMIDE
     Indication: Seizure
  6. VIMPAT [Suspect]
     Active Substance: LACOSAMIDE
     Dosage: 5 MILLILITER, 2X/DAY (BID)X 1 WEEK
  7. VIMPAT [Suspect]
     Active Substance: LACOSAMIDE
     Dosage: 6 MILLILITER, 2X/DAY (BID)X 1 WEEK
  8. VIMPAT [Suspect]
     Active Substance: LACOSAMIDE
     Dosage: 7 MILLILITER, 2X/DAY (BID)
  9. LEVETIRACETAM [Suspect]
     Active Substance: LEVETIRACETAM
     Indication: Product used for unknown indication
  10. ONFI [Concomitant]
     Active Substance: CLOBAZAM
     Indication: Product used for unknown indication
     Dates: start: 20240823
  11. ONFI [Concomitant]
     Active Substance: CLOBAZAM
     Route: 048
  12. ONFI [Concomitant]
     Active Substance: CLOBAZAM
     Dosage: 10 MILLIGRAM, ONCE DAILY (QD)
     Route: 048
  13. TOPAMAX [Concomitant]
     Active Substance: TOPIRAMATE
     Indication: Product used for unknown indication
  14. TOPAMAX [Concomitant]
     Active Substance: TOPIRAMATE
     Dosage: 100 MILLIGRAM, 2X/DAY (BID)
     Route: 048
     Dates: start: 20240824
  15. TOPAMAX [Concomitant]
     Active Substance: TOPIRAMATE
  16. CLONAZEPAM [Concomitant]
     Active Substance: CLONAZEPAM
  17. TYLENOL [Concomitant]
     Active Substance: ACETAMINOPHEN
     Indication: Product used for unknown indication
  18. TYLENOL [Concomitant]
     Active Substance: ACETAMINOPHEN
     Route: 048
  19. TYLENOL [Concomitant]
     Active Substance: ACETAMINOPHEN
     Indication: Product used for unknown indication
  20. TYLENOL [Concomitant]
     Active Substance: ACETAMINOPHEN
     Route: 054
  21. CANNABIDIOL [Concomitant]
     Active Substance: CANNABIDIOL
     Indication: Product used for unknown indication
     Dosage: 300 MILLIGRAM, 2X/DAY (BID)
     Route: 048
  22. BENADRYL [Concomitant]
     Active Substance: DIPHENHYDRAMINE HYDROCHLORIDE
     Indication: Product used for unknown indication
     Route: 042
  23. BENADRYL [Concomitant]
     Active Substance: DIPHENHYDRAMINE HYDROCHLORIDE
     Indication: Product used for unknown indication
     Route: 048
  24. BENADRYL [Concomitant]
     Active Substance: DIPHENHYDRAMINE HYDROCHLORIDE
     Indication: Product used for unknown indication
     Route: 048
  25. CARNITOR [Concomitant]
     Active Substance: LEVOCARNITINE
     Indication: Product used for unknown indication
     Dosage: 500 MILLIGRAM, 2X/DAY (BID)
     Route: 048
     Dates: start: 20240824
  26. CARNITOR [Concomitant]
     Active Substance: LEVOCARNITINE
     Dosage: 500 MILLIGRAM, 2X/DAY (BID) SUGAR FREE
  27. VERSED [Concomitant]
     Active Substance: MIDAZOLAM HYDROCHLORIDE
     Indication: Product used for unknown indication
  28. VERSED [Concomitant]
     Active Substance: MIDAZOLAM HYDROCHLORIDE
     Indication: Product used for unknown indication
  29. DIASTAT ACUDIAL [Concomitant]
     Active Substance: DIAZEPAM
     Indication: Seizure
  30. EPIDIOLEX [Concomitant]
     Active Substance: CANNABIDIOL
     Indication: Product used for unknown indication
     Dosage: 3 MILLILITER, 2X/DAY (BID)
     Route: 048
  31. EPIPEN [Concomitant]
     Active Substance: EPINEPHRINE
     Indication: Product used for unknown indication
  32. VALTOCO [Concomitant]
     Active Substance: DIAZEPAM
     Indication: Product used for unknown indication
     Route: 045

REACTIONS (9)
  - Seizure [Not Recovered/Not Resolved]
  - Hypothalamic hamartoma [Not Recovered/Not Resolved]
  - Tumour ablation [Recovered/Resolved]
  - Epilepsy [Unknown]
  - Seizure cluster [Unknown]
  - Atonic seizures [Unknown]
  - Behaviour disorder [Unknown]
  - Fall [Unknown]
  - Drug level decreased [Unknown]

NARRATIVE: CASE EVENT DATE: 20241006
